FAERS Safety Report 16125538 (Version 1)
Quarter: 2019Q1

REPORT INFORMATION
  Report Type: Spontaneous
  Country: FR (occurrence: FR)
  Receive Date: 20190328
  Receipt Date: 20190328
  Transmission Date: 20190418
  Serious: Yes (Hospitalization)
  Sender: FDA-Public Use
  Company Number: FR-PROVELL PHARMACEUTICALS-2064801

PATIENT
  Age: 47 Year
  Sex: Female

DRUGS (12)
  1. XANAX [Concomitant]
     Active Substance: ALPRAZOLAM
     Dates: start: 201709
  2. PARACETAMOL [Concomitant]
     Active Substance: ACETAMINOPHEN
     Dates: start: 200810
  3. KARDEGIC [Concomitant]
     Active Substance: ASPIRIN DL-LYSINE
     Dates: start: 200810
  4. TAHOR [Concomitant]
     Active Substance: ATORVASTATIN CALCIUM
     Dates: start: 200810
  5. DULOXETINE. [Concomitant]
     Active Substance: DULOXETINE
     Dates: start: 201809
  6. AVLOCARDYL [Concomitant]
     Active Substance: PROPRANOLOL HYDROCHLORIDE
     Dates: start: 200810
  7. TRAMADOL ACTAVIS [Concomitant]
     Active Substance: TRAMADOL
     Dates: start: 201810
  8. LUTERAN [Concomitant]
     Active Substance: CHLORMADINONE ACETATE
     Dates: start: 200810
  9. TANGANIL [Concomitant]
     Active Substance: ACETYLLEUCINE
     Dates: start: 200810
  10. EUTHYROX [Suspect]
     Active Substance: LEVOTHYROXINE SODIUM
     Indication: POST PROCEDURAL HYPOTHYROIDISM
     Dates: start: 201703
  11. EUTHYROX [Suspect]
     Active Substance: LEVOTHYROXINE SODIUM
     Dates: start: 201703
  12. KEPPRA [Concomitant]
     Active Substance: LEVETIRACETAM
     Dates: start: 200810

REACTIONS (18)
  - Haemorrhage intracranial [None]
  - Fatigue [None]
  - Alopecia [None]
  - Anxiety [None]
  - Weight decreased [Recovered/Resolved]
  - Aphasia [None]
  - Blood thyroid stimulating hormone decreased [Recovered/Resolved]
  - Heart rate abnormal [None]
  - Depression [None]
  - Dyspnoea [None]
  - Pain [None]
  - Insomnia [Recovering/Resolving]
  - Hypertension [None]
  - Loss of personal independence in daily activities [None]
  - Thyroxine increased [None]
  - Intracranial aneurysm [None]
  - Amnesia [None]
  - Nervousness [None]

NARRATIVE: CASE EVENT DATE: 2017
